FAERS Safety Report 14393295 (Version 1)
Quarter: 2018Q1

REPORT INFORMATION
  Report Type: Spontaneous
  Country: US (occurrence: US)
  Receive Date: 20180114
  Receipt Date: 20180114
  Transmission Date: 20180509
  Serious: Yes (Other)
  Sender: FDA-Public Use
  Company Number: None

PATIENT
  Age: 59 Year
  Sex: Female
  Weight: 67.5 kg

DRUGS (5)
  1. NORCO [Concomitant]
     Active Substance: ACETAMINOPHEN\HYDROCODONE BITARTRATE
  2. BIO HORMONES MAGNESIUM [Concomitant]
  3. D3 DROPS [Concomitant]
  4. LIDODERM [Concomitant]
     Active Substance: LIDOCAINE
  5. HYDROCODON 10/325 [Suspect]
     Active Substance: ACETAMINOPHEN\HYDROCODONE
     Indication: COMPLEX REGIONAL PAIN SYNDROME
     Dosage: ?          QUANTITY:90 TABLET(S);?
     Route: 048
     Dates: start: 20180112

REACTIONS (7)
  - Erythema [None]
  - Product substitution issue [None]
  - Colitis [None]
  - Nausea [None]
  - Swelling face [None]
  - Allergic reaction to excipient [None]
  - Disease recurrence [None]

NARRATIVE: CASE EVENT DATE: 20180112
